FAERS Safety Report 21400923 (Version 1)
Quarter: 2022Q4

REPORT INFORMATION
  Report Type: Spontaneous
  Country: DE (occurrence: DE)
  Receive Date: 20221003
  Receipt Date: 20221003
  Transmission Date: 20230113
  Serious: Yes (Hospitalization, Other)
  Sender: FDA-Public Use
  Company Number: None

PATIENT
  Sex: Female

DRUGS (1)
  1. EZETIMIBE [Suspect]
     Active Substance: EZETIMIBE
     Indication: Product used for unknown indication
     Dosage: UNK, TABLET (UNCOATED, ORAL)
     Route: 048

REACTIONS (3)
  - Acute abdomen [Unknown]
  - Cholecystitis acute [Unknown]
  - Sepsis [Unknown]
